FAERS Safety Report 7224619-8 (Version None)
Quarter: 2011Q1

REPORT INFORMATION
  Report Type: 
  Country: None (occurrence: None)
  Receive Date: 20110106
  Receipt Date: 20110106
  Transmission Date: 20110831
  Serious: Yes (Hospitalization)
  Sender: FDA-Public Use
  Company Number: None

PATIENT
  Age: 84 Year
  Sex: Female
  Weight: 44.4 kg

DRUGS (19)
  1. VIT B12 [Concomitant]
  2. PRILOSEC [Concomitant]
  3. DITROPAN [Concomitant]
  4. ASPIRIN [Concomitant]
  5. DOXYCYCLINE [Suspect]
     Dosage: 100MG BID PO CHRONIC
     Route: 048
  6. CA + VIT D [Concomitant]
  7. SENOKOT [Concomitant]
  8. TYLENOL 650 [Concomitant]
  9. LOMOTIL [Concomitant]
  10. MAALOX [Concomitant]
  11. REMERON [Suspect]
     Dosage: 15MG QHS PO RECENT
     Route: 048
  12. NORCO [Concomitant]
  13. LIDODERM [Concomitant]
  14. M.V.I. [Concomitant]
  15. SACCHAROMYCES [Concomitant]
  16. TRAMADOL HCL [Suspect]
     Indication: PAIN
     Dosage: 75MG Q8H PRN RECENT PO
     Route: 048
  17. PHENERGAN HCL [Concomitant]
  18. NYSTATIN [Concomitant]
  19. ZANTAC [Concomitant]

REACTIONS (2)
  - ANGIOEDEMA [None]
  - DELIRIUM [None]
